FAERS Safety Report 18214721 (Version 2)
Quarter: 2021Q2

REPORT INFORMATION
  Report Type: Report from Study
  Country: US (occurrence: US)
  Receive Date: 20200831
  Receipt Date: 20210617
  Transmission Date: 20210717
  Serious: Yes (Hospitalization)
  Sender: FDA-Public Use
  Company Number: US-REGENERON PHARMACEUTICALS, INC.-2020-72278

PATIENT

DRUGS (9)
  1. ALBUTEROL                          /00139501/ [Concomitant]
     Active Substance: ALBUTEROL
     Indication: WHEEZING
     Dosage: 90 MCG/ ACT. (AS REQUIRED)
     Dates: start: 2019
  2. TYLENOL [Concomitant]
     Active Substance: ACETAMINOPHEN
     Indication: PAIN IN EXTREMITY
     Dosage: 650 MG, AS REQUIRED
     Dates: start: 202006
  3. RP1 [Suspect]
     Active Substance: SERINE/THREONINE-PROTEIN KINASE 19
     Indication: SQUAMOUS CELL CARCINOMA
     Dosage: 1 X 10^6 PFU/ML (1 IN 3 WK)
     Route: 036
     Dates: start: 20200728, end: 20200728
  4. VITAMIN D                          /00107901/ [Concomitant]
     Active Substance: ERGOCALCIFEROL
     Indication: SUPPLEMENTATION THERAPY
     Dosage: 5000 MCG (5000 MCG,1 IN 1 D)
     Dates: start: 2010, end: 20200818
  5. CEMIPLIMAB [Suspect]
     Active Substance: CEMIPLIMAB
     Indication: SQUAMOUS CELL CARCINOMA
     Dosage: 350 MG (350 MG)
     Route: 042
     Dates: start: 20200818, end: 20200818
  6. RP1 [Suspect]
     Active Substance: SERINE/THREONINE-PROTEIN KINASE 19
     Dosage: 1 X 10^7 PFU/ML
     Route: 036
     Dates: start: 20200818, end: 20200818
  7. HYDROCHLOROTHIAZIDE. [Concomitant]
     Active Substance: HYDROCHLOROTHIAZIDE
     Indication: HYPERTENSION
     Dosage: 50 MCG (50 MCG,1 IN 1 D)
     Dates: start: 201506
  8. MULTIVITAMIN                       /00097801/ [Concomitant]
     Active Substance: VITAMINS
     Indication: SUPPLEMENTATION THERAPY
     Dosage: UNK
     Dates: start: 2015
  9. ONDANSETRON [Concomitant]
     Active Substance: ONDANSETRON
     Indication: NAUSEA
     Dosage: 8 ML (2 ML AS REQUIRED)
     Route: 042

REACTIONS (1)
  - Fatigue [Recovered/Resolved]

NARRATIVE: CASE EVENT DATE: 20200819
